FAERS Safety Report 9314216 (Version 2)
Quarter: 2013Q4

REPORT INFORMATION
  Report Type: Report from Study
  Country: CA (occurrence: CA)
  Receive Date: 20130529
  Receipt Date: 20131018
  Transmission Date: 20140711
  Serious: Yes (Other)
  Sender: FDA-Public Use
  Company Number: CA-JNJFOC-20130516445

PATIENT
  Age: 57 Year
  Sex: Female
  Weight: 71 kg

DRUGS (8)
  1. REMICADE [Suspect]
     Indication: COLITIS ULCERATIVE
     Route: 042
     Dates: start: 20101122
  2. FOSAMAX [Concomitant]
     Indication: OSTEOPOROSIS
     Route: 065
     Dates: start: 201012
  3. VITAMIN D [Concomitant]
     Indication: PROPHYLAXIS
     Route: 048
     Dates: start: 2009
  4. CALCIUM [Concomitant]
     Indication: PROPHYLAXIS
     Route: 048
     Dates: start: 2009
  5. CELEXA [Concomitant]
     Route: 065
     Dates: start: 2000
  6. PANTOLOC [Concomitant]
     Indication: HYPERCHLORHYDRIA
     Route: 065
     Dates: start: 2009
  7. HYDROXYZINE HYDROCHLORIDE [Concomitant]
     Route: 065
  8. LIPITOR [Concomitant]
     Indication: HYPERLIPIDAEMIA
     Route: 065
     Dates: start: 2006

REACTIONS (1)
  - Basal cell carcinoma [Not Recovered/Not Resolved]
